FAERS Safety Report 24441149 (Version 3)
Quarter: 2024Q4

REPORT INFORMATION
  Report Type: Spontaneous
  Country: GB (occurrence: GB)
  Receive Date: 20241016
  Receipt Date: 20241206
  Transmission Date: 20250115
  Serious: No
  Sender: BECTON DICKINSON
  Company Number: GB-BECTON DICKINSON-GB-BD-24-000590

PATIENT
  Age: 41 Year
  Sex: Female

DRUGS (1)
  1. CHLORAPREP [Suspect]
     Active Substance: CHLORHEXIDINE GLUCONATE\ISOPROPYL ALCOHOL
     Indication: Infection prophylaxis
     Dosage: UNK UNK, BIW
     Route: 065
     Dates: start: 202009

REACTIONS (3)
  - Wound [Recovering/Resolving]
  - Injury associated with device [Recovering/Resolving]
  - Device malfunction [Recovering/Resolving]

NARRATIVE: CASE EVENT DATE: 20241001
